FAERS Safety Report 10362714 (Version 2)
Quarter: 2014Q3

REPORT INFORMATION
  Report Type: Other
  Country: US (occurrence: US)
  Receive Date: 20140805
  Receipt Date: 20140805
  Transmission Date: 20150326
  Serious: Yes (Hospitalization, Other)
  Sender: FDA-Public Use
  Company Number: US-GSKPPD-2014GSK006782

PATIENT
  Age: 54 Year
  Sex: Male

DRUGS (4)
  1. COREG [Concomitant]
     Active Substance: CARVEDILOL
  2. PLAVIX [Concomitant]
     Active Substance: CLOPIDOGREL BISULFATE
  3. AVANDIA [Suspect]
     Active Substance: ROSIGLITAZONE MALEATE
     Indication: DIABETES MELLITUS
     Dosage: AVANDIA WAS NOT LISTED AMONG THE PATIENTS DISCHARGE RECORDS.
     Route: 048
  4. ZESTRIL [Concomitant]
     Active Substance: LISINOPRIL

REACTIONS (2)
  - Cardiac failure congestive [None]
  - Cardiomyopathy [Recovered/Resolved]

NARRATIVE: CASE EVENT DATE: 20090810
